FAERS Safety Report 24688988 (Version 3)
Quarter: 2025Q3

REPORT INFORMATION
  Report Type: Spontaneous
  Country: JP (occurrence: JP)
  Receive Date: 20241203
  Receipt Date: 20250905
  Transmission Date: 20251021
  Serious: Yes (Life-Threatening, Other)
  Sender: ARGENX BVBA
  Company Number: JP-ARGENX-2024-ARGX-JP003041AA

PATIENT

DRUGS (43)
  1. ELTROMBOPAG [Suspect]
     Active Substance: ELTROMBOPAG
     Dosage: 12.5 MG, DAILY
     Route: 048
     Dates: start: 20240507, end: 20240729
  2. ELTROMBOPAG [Suspect]
     Active Substance: ELTROMBOPAG
     Indication: Immune thrombocytopenia
     Route: 048
  3. ELTROMBOPAG [Suspect]
     Active Substance: ELTROMBOPAG
     Route: 048
  4. ELTROMBOPAG [Suspect]
     Active Substance: ELTROMBOPAG
     Route: 048
  5. ELTROMBOPAG [Suspect]
     Active Substance: ELTROMBOPAG
     Dosage: 25 MG, DAILY
     Route: 048
     Dates: start: 20240730
  6. ELTROMBOPAG [Suspect]
     Active Substance: ELTROMBOPAG
     Route: 048
  7. ELTROMBOPAG [Suspect]
     Active Substance: ELTROMBOPAG
     Route: 048
  8. ELTROMBOPAG [Suspect]
     Active Substance: ELTROMBOPAG
     Route: 048
  9. ELTROMBOPAG [Suspect]
     Active Substance: ELTROMBOPAG
     Route: 048
  10. ELTROMBOPAG [Suspect]
     Active Substance: ELTROMBOPAG
     Route: 048
  11. VYVGART [Suspect]
     Active Substance: EFGARTIGIMOD ALFA-FCAB
     Indication: Immune thrombocytopenia
     Route: 042
     Dates: start: 20240430, end: 20241029
  12. ELDECALCITOL [Concomitant]
     Active Substance: ELDECALCITOL
     Indication: Prophylaxis
     Dosage: 0.75 UG, DAILY
     Route: 048
  13. LORELCO [Concomitant]
     Active Substance: PROBUCOL
     Indication: Product used for unknown indication
     Dosage: 250 MG, BID
     Route: 048
     Dates: end: 20240617
  14. PRAVASTATIN SODIUM [Concomitant]
     Active Substance: PRAVASTATIN SODIUM
     Indication: Product used for unknown indication
     Dosage: 10 MG, DAILY
     Route: 048
     Dates: end: 20240624
  15. PREDONINE [Concomitant]
     Active Substance: PREDNISOLONE
     Route: 048
  16. PREDONINE [Concomitant]
     Active Substance: PREDNISOLONE
     Route: 048
  17. PREDONINE [Concomitant]
     Active Substance: PREDNISOLONE
     Dosage: 10 MG, DAILY
     Route: 048
     Dates: start: 20240521, end: 20240617
  18. PREDONINE [Concomitant]
     Active Substance: PREDNISOLONE
     Route: 065
  19. PREDONINE [Concomitant]
     Active Substance: PREDNISOLONE
     Route: 065
  20. PREDONINE [Concomitant]
     Active Substance: PREDNISOLONE
     Dosage: 15 MG, DAILY
     Route: 048
     Dates: end: 20240520
  21. PREDONINE [Concomitant]
     Active Substance: PREDNISOLONE
     Route: 048
  22. PREDONINE [Concomitant]
     Active Substance: PREDNISOLONE
     Route: 048
  23. PREDONINE [Concomitant]
     Active Substance: PREDNISOLONE
     Route: 065
  24. PREDONINE [Concomitant]
     Active Substance: PREDNISOLONE
     Route: 065
  25. PREDONINE [Concomitant]
     Active Substance: PREDNISOLONE
     Route: 048
  26. PREDONINE [Concomitant]
     Active Substance: PREDNISOLONE
     Route: 048
  27. PREDONINE [Concomitant]
     Active Substance: PREDNISOLONE
     Route: 065
  28. PREDONINE [Concomitant]
     Active Substance: PREDNISOLONE
     Route: 065
  29. PREDONINE [Concomitant]
     Active Substance: PREDNISOLONE
     Indication: Immune thrombocytopenia
     Route: 065
     Dates: start: 201707
  30. PREDONINE [Concomitant]
     Active Substance: PREDNISOLONE
     Dosage: 5 MG, DAILY
     Route: 048
     Dates: start: 20240625
  31. PREDONINE [Concomitant]
     Active Substance: PREDNISOLONE
     Route: 048
  32. PREDONINE [Concomitant]
     Active Substance: PREDNISOLONE
     Route: 048
  33. PREDONINE [Concomitant]
     Active Substance: PREDNISOLONE
     Route: 065
  34. PREDONINE [Concomitant]
     Active Substance: PREDNISOLONE
     Route: 065
  35. PREDONINE [Concomitant]
     Active Substance: PREDNISOLONE
     Dosage: 7.5 MG, DAILY
     Route: 048
     Dates: start: 20240618, end: 20240624
  36. PREDONINE [Concomitant]
     Active Substance: PREDNISOLONE
     Route: 065
  37. RABEPRAZOLE SODIUM [Concomitant]
     Active Substance: RABEPRAZOLE SODIUM
     Indication: Prophylaxis
     Dosage: 10 MG, DAILY
     Route: 048
  38. TAVALISSE [Concomitant]
     Active Substance: FOSTAMATINIB
     Dosage: 150 MG, BID
     Route: 048
  39. TAVALISSE [Concomitant]
     Active Substance: FOSTAMATINIB
     Indication: Immune thrombocytopenia
     Route: 048
     Dates: start: 202307
  40. TAVALISSE [Concomitant]
     Active Substance: FOSTAMATINIB
     Route: 048
  41. TAVALISSE [Concomitant]
     Active Substance: FOSTAMATINIB
     Route: 048
  42. TAVALISSE [Concomitant]
     Active Substance: FOSTAMATINIB
     Route: 048
  43. TAVALISSE [Concomitant]
     Active Substance: FOSTAMATINIB
     Route: 048

REACTIONS (7)
  - Platelet count decreased [Recovered/Resolved]
  - Platelet count decreased [Recovering/Resolving]
  - Therapeutic response decreased [Unknown]
  - Viral infection [Unknown]
  - Sinusitis [Unknown]
  - Oral herpes [Unknown]
  - C-reactive protein increased [Recovered/Resolved]

NARRATIVE: CASE EVENT DATE: 20240507
